FAERS Safety Report 9028165 (Version 2)
Quarter: 2013Q1

REPORT INFORMATION
  Report Type: Spontaneous
  Country: CA (occurrence: CA)
  Receive Date: 20130123
  Receipt Date: 20130227
  Transmission Date: 20140127
  Serious: Yes (Life-Threatening, Hospitalization)
  Sender: FDA-Public Use
  Company Number: PHHY2013CA003998

PATIENT
  Age: 56 None
  Sex: Male

DRUGS (6)
  1. GLEEVEC [Suspect]
     Indication: GASTROINTESTINAL STROMAL TUMOUR
     Dosage: 400 MG, QD
     Route: 048
     Dates: start: 20130102, end: 20130104
  2. GLEEVEC [Suspect]
     Dosage: 200 MG, QD
     Route: 048
     Dates: start: 20130105, end: 20130106
  3. HYDROMORPHONE [Concomitant]
     Dosage: 6 MG, BID
  4. DILAUDID [Concomitant]
  5. RIVOTRIL [Concomitant]
  6. ALBUMIN [Concomitant]

REACTIONS (10)
  - Feeling abnormal [Unknown]
  - Blood potassium increased [Unknown]
  - Fatigue [Unknown]
  - Nausea [Unknown]
  - Vomiting [Unknown]
  - Decreased appetite [Unknown]
  - Asthenia [Unknown]
  - Abdominal discomfort [Unknown]
  - Blood creatinine increased [Unknown]
  - Weight decreased [Unknown]
